FAERS Safety Report 18119872 (Version 2)
Quarter: 2020Q4

REPORT INFORMATION
  Report Type: Report from Study
  Country: US (occurrence: US)
  Receive Date: 20200806
  Receipt Date: 20201203
  Transmission Date: 20210113
  Serious: Yes (Other)
  Sender: FDA-Public Use
  Company Number: US-B.I. PHARMACEUTICALS,INC./RIDGEFIELD-2020-BI-029578

PATIENT
  Age: 56 Year
  Sex: Female

DRUGS (1)
  1. OFEV [Suspect]
     Active Substance: NINTEDANIB
     Indication: IDIOPATHIC PULMONARY FIBROSIS
     Dosage: 150MG TWICE DAILY BY MOUTH.
     Route: 048
     Dates: start: 20181106, end: 20200727

REACTIONS (5)
  - Dyspnoea [Unknown]
  - Diarrhoea [Recovered/Resolved]
  - Gastric haemorrhage [Unknown]
  - Haemoglobin decreased [Unknown]
  - Blood count abnormal [Unknown]

NARRATIVE: CASE EVENT DATE: 20200724
